FAERS Safety Report 5247022-9 (Version None)
Quarter: 2007Q1

REPORT INFORMATION
  Report Type: 
  Country: None (occurrence: None)
  Receive Date: 20070226
  Receipt Date: 20070221
  Transmission Date: 20070707
  Serious: Yes (Hospitalization)
  Sender: FDA-Public Use
  Company Number: FR-GLAXOSMITHKLINE-B0459295A

PATIENT
  Age: 74 Year
  Sex: Female
  Weight: 49 kg

DRUGS (6)
  1. ZANTAC [Suspect]
     Dosage: 50MG PER DAY
     Route: 042
     Dates: start: 20070123, end: 20070123
  2. TAXOL [Suspect]
     Dosage: 220MG PER DAY
     Route: 042
     Dates: start: 20070123, end: 20070123
  3. CARBOPLATIN [Suspect]
     Dosage: 340MG PER DAY
     Route: 042
     Dates: start: 20070123, end: 20070123
  4. SOLU-MEDROL [Suspect]
     Dosage: 120MG PER DAY
     Route: 042
     Dates: start: 20070123, end: 20070123
  5. POLARAMINE [Suspect]
     Dosage: 5MG PER DAY
     Route: 042
     Dates: start: 20070123, end: 20070123
  6. ZOFRAN [Concomitant]
     Dosage: 8MG PER DAY
     Route: 042
     Dates: start: 20070123, end: 20070123

REACTIONS (6)
  - ERYTHEMA [None]
  - FORMICATION [None]
  - HYPERSENSITIVITY [None]
  - PRURITUS [None]
  - SENSE OF OPPRESSION [None]
  - VOMITING [None]
